FAERS Safety Report 21132635 (Version 5)
Quarter: 2022Q4

REPORT INFORMATION
  Report Type: Report from Study
  Country: MX (occurrence: MX)
  Receive Date: 20220726
  Receipt Date: 20221228
  Transmission Date: 20230113
  Serious: Yes (Hospitalization, Other)
  Sender: FDA-Public Use
  Company Number: MX-NOVARTISPH-NVSC2022MX121331

PATIENT
  Age: 37 Year
  Sex: Female
  Weight: 59 kg

DRUGS (3)
  1. GILENYA [Suspect]
     Active Substance: FINGOLIMOD HYDROCHLORIDE
     Indication: Multiple sclerosis
     Dosage: 0.5 MG, EVERY THIRD DAY
     Route: 048
     Dates: start: 20210924, end: 20220719
  2. GILENYA [Suspect]
     Active Substance: FINGOLIMOD HYDROCHLORIDE
     Dosage: 0.5 MG, QD
     Route: 048
     Dates: start: 20210924
  3. GILENYA [Suspect]
     Active Substance: FINGOLIMOD HYDROCHLORIDE
     Dosage: 1 DOSAGE FORM  (EVERY THIRD DAY)
     Route: 048
     Dates: start: 20220720

REACTIONS (27)
  - Nausea [Unknown]
  - Peripheral swelling [Recovering/Resolving]
  - Multiple sclerosis relapse [Recovered/Resolved]
  - Limb discomfort [Not Recovered/Not Resolved]
  - Asthenia [Recovered/Resolved]
  - Gait disturbance [Recovered/Resolved]
  - Abdominal pain upper [Recovered/Resolved]
  - Abdominal discomfort [Recovered/Resolved]
  - Vomiting [Recovered/Resolved]
  - Bone pain [Recovered/Resolved]
  - Pyrexia [Recovered/Resolved]
  - Muscular weakness [Unknown]
  - Multiple sclerosis relapse [Recovered/Resolved with Sequelae]
  - Urinary tract infection [Recovered/Resolved with Sequelae]
  - Inflammation [Recovered/Resolved with Sequelae]
  - Asthenia [Recovered/Resolved with Sequelae]
  - Multiple sclerosis relapse [Not Recovered/Not Resolved]
  - Urinary tract infection [Not Recovered/Not Resolved]
  - Paraesthesia [Unknown]
  - Coordination abnormal [Unknown]
  - Lymphocyte count decreased [Unknown]
  - Decreased immune responsiveness [Not Recovered/Not Resolved]
  - Amnesia [Unknown]
  - Weight decreased [Unknown]
  - Fatigue [Unknown]
  - Dizziness [Not Recovered/Not Resolved]
  - Off label use [Not Recovered/Not Resolved]

NARRATIVE: CASE EVENT DATE: 20220507
